FAERS Safety Report 9751065 (Version 1)
Quarter: 2013Q4

REPORT INFORMATION
  Report Type: Spontaneous
  Country: GB (occurrence: GB)
  Receive Date: 20131212
  Receipt Date: 20131212
  Transmission Date: 20140711
  Serious: Yes (Other)
  Sender: FDA-Public Use
  Company Number: GB-GILEAD-GB-CVT-090766

PATIENT
  Sex: Male

DRUGS (7)
  1. RANEXA [Suspect]
     Indication: ANGINA PECTORIS
     Route: 048
     Dates: start: 200907
  2. ASPIRIN                            /00002701/ [Concomitant]
     Indication: ANGINA PECTORIS
  3. NICORANDIL [Concomitant]
     Indication: ANGINA PECTORIS
  4. CARVEDILOL [Concomitant]
     Indication: ANGINA PECTORIS
  5. SIMVASTATIN [Concomitant]
     Indication: BLOOD CHOLESTEROL INCREASED
  6. CANDESARTAN [Concomitant]
     Indication: HYPERTENSION
  7. GLYCERYL TRINITRATE [Concomitant]
     Indication: ANGINA PECTORIS

REACTIONS (1)
  - Dizziness [Recovered/Resolved]
